FAERS Safety Report 23408185 (Version 1)
Quarter: 2024Q1

REPORT INFORMATION
  Report Type: Report from Study
  Country: NL (occurrence: NL)
  Receive Date: 20240117
  Receipt Date: 20240117
  Transmission Date: 20240410
  Serious: Yes (Death)
  Sender: FDA-Public Use
  Company Number: NL-ABBVIE-5591277

PATIENT
  Age: 78 Year
  Sex: Male

DRUGS (4)
  1. CARBIDOPA\LEVODOPA [Suspect]
     Active Substance: CARBIDOPA\LEVODOPA
     Indication: Parkinson^s disease
     Dosage: MD 12.5 ML; CD 4.6 ML/H; ED 3.5 ML?DURATION TEXT: REMAINS AT 16 HOURS
     Route: 050
     Dates: start: 20231019, end: 20231019
  2. CARBIDOPA\LEVODOPA [Suspect]
     Active Substance: CARBIDOPA\LEVODOPA
     Dosage: LAST ADMIN DATE: 2023
     Route: 050
     Dates: start: 20230125
  3. CARBIDOPA AND LEVODOPA [Concomitant]
     Active Substance: CARBIDOPA\LEVODOPA
     Indication: Parkinson^s disease
     Dosage: FREQUENCY TEXT: 6 TIMES 1.5 TABLETS AND 1 TIME 2 TABLETS?FORM STRENGTH: 125 MILLIGRAMS
     Dates: start: 20171101, end: 20201120
  4. TRIPTORELIN PAMOATE [Concomitant]
     Active Substance: TRIPTORELIN PAMOATE
     Indication: Metastasis
     Dates: start: 20211101

REACTIONS (1)
  - Oesophageal carcinoma [Fatal]

NARRATIVE: CASE EVENT DATE: 20240115
